FAERS Safety Report 21043294 (Version 1)
Quarter: 2022Q3

REPORT INFORMATION
  Report Type: Spontaneous
  Country: US (occurrence: US)
  Receive Date: 20220705
  Receipt Date: 20220705
  Transmission Date: 20221026
  Serious: No
  Sender: FDA-Public Use
  Company Number: US-BRISTOL-MYERS SQUIBB COMPANY-BMS-2022-033503

PATIENT
  Age: 70 Year
  Sex: Male

DRUGS (1)
  1. POMALYST [Suspect]
     Active Substance: POMALIDOMIDE
     Indication: Thyroiditis
     Dosage: FREQ: TAKE 1 CAPSULE BY MOUTH DAILY ON DAYS 1-21, THEN OFF FOR 7 DAYS, THEN REPEAT EVERY 28 DAYS
     Route: 048
     Dates: start: 20210405

REACTIONS (2)
  - Adverse event [Unknown]
  - Intentional product use issue [Unknown]
